FAERS Safety Report 8161202-4 (Version None)
Quarter: 2012Q1

REPORT INFORMATION
  Report Type: 
  Country: None (occurrence: None)
  Receive Date: 20120103
  Receipt Date: 20111028
  Transmission Date: 20120608
  Serious: No
  Sender: FDA-Public Use
  Company Number: AE-2011-001547

PATIENT
  Age: 52 Year
  Sex: Male

DRUGS (8)
  1. OXYCODONE HCL [Concomitant]
  2. PEGINTERFERON ALFA-2A [Concomitant]
  3. RIBAPAK (RIBAVIRIN) [Concomitant]
  4. ACETAMINOPHEN [Concomitant]
  5. XANAX [Concomitant]
  6. IBUPROFEN (ADVIL) [Concomitant]
  7. INCIVEK [Suspect]
     Dosage: 2250 MG (750 MG, 3 IN 1 D)
     Dates: start: 20110915
  8. INCIVEK [Suspect]
     Dosage: 2250 MG (750 MG, 3 IN 1 D)
     Dates: start: 20110811, end: 20110914

REACTIONS (1)
  - IMPETIGO [None]
